FAERS Safety Report 9192025 (Version 1)
Quarter: 2013Q1

REPORT INFORMATION
  Report Type: Spontaneous
  Country: GB (occurrence: None)
  Receive Date: 20130325
  Receipt Date: 20130325
  Transmission Date: 20140127
  Serious: Yes (Other)
  Sender: FDA-Public Use
  Company Number: E2B_00000661

PATIENT
  Age: 2 Year
  Sex: Male

DRUGS (1)
  1. CEFTRIAXONE [Suspect]
     Indication: PERIORBITAL CELLULITIS
     Route: 042
     Dates: start: 20121129, end: 20121129

REACTIONS (8)
  - Cough [None]
  - Wheezing [None]
  - Diarrhoea [None]
  - Panic reaction [None]
  - Pain in extremity [None]
  - Scratch [None]
  - Infusion related reaction [None]
  - Emotional distress [None]
